FAERS Safety Report 7865421-3 (Version None)
Quarter: 2011Q4

REPORT INFORMATION
  Report Type: 
  Country: None (occurrence: None)
  Receive Date: 20111028
  Receipt Date: 20101220
  Transmission Date: 20120403
  Serious: No
  Sender: FDA-Public Use
  Company Number: US-GLAXOSMITHKLINE-A0900638A

PATIENT
  Age: 72 Year
  Sex: Male

DRUGS (8)
  1. TERAZOSIN HCL [Concomitant]
  2. HYDROCHLOROTHIAZIDE [Concomitant]
  3. OMEPRAZOLE [Concomitant]
  4. COMBIVENT [Concomitant]
  5. VITAMIN D [Concomitant]
  6. ADVAIR DISKUS 100/50 [Suspect]
     Indication: CHRONIC OBSTRUCTIVE PULMONARY DISEASE
     Dosage: 1PUFF TWICE PER DAY
     Route: 055
     Dates: start: 20101001
  7. ASPIRIN [Concomitant]
  8. PROBIOTIC [Concomitant]

REACTIONS (1)
  - DYSPHONIA [None]
